FAERS Safety Report 21531587 (Version 1)
Quarter: 2022Q4

REPORT INFORMATION
  Report Type: Spontaneous
  Country: US (occurrence: US)
  Receive Date: 20221031
  Receipt Date: 20221031
  Transmission Date: 20230112
  Serious: Yes (Other)
  Sender: FDA-Public Use
  Company Number: US-009507513-2210USA010327

PATIENT
  Sex: Female

DRUGS (1)
  1. KEYTRUDA [Suspect]
     Active Substance: PEMBROLIZUMAB
     Indication: Triple negative breast cancer
     Dosage: DOSE IS UNKNOWN BY REPORTER/FREQUENCY IS EVERY THREE WEEKS
     Dates: start: 202012, end: 202203

REACTIONS (3)
  - Malignant neoplasm progression [Unknown]
  - Thyroid disorder [Unknown]
  - Rash [Unknown]

NARRATIVE: CASE EVENT DATE: 20220101
